FAERS Safety Report 6983064-0 (Version None)
Quarter: 2010Q3

REPORT INFORMATION
  Report Type: 
  Country: None (occurrence: None)
  Receive Date: 20100914
  Receipt Date: 20100601
  Transmission Date: 20110219
  Serious: Yes (Other)
  Sender: FDA-Public Use
  Company Number: US-PFIZER INC-2010068855

PATIENT
  Sex: Female
  Weight: 55.329 kg

DRUGS (7)
  1. LYRICA [Suspect]
     Indication: FIBROMYALGIA
     Dosage: 30 MG, 3X/DAY
     Route: 048
     Dates: start: 20091101
  2. ZEGERID [Suspect]
     Indication: DYSPEPSIA
     Dosage: 40 MG, 1X/DAY
     Route: 048
     Dates: start: 20100101
  3. BELLADONNA AND PHENOBARBITONE [Suspect]
     Indication: GASTROINTESTINAL INFECTION
     Dosage: UNK
     Dates: start: 20100301
  4. CYMBALTA [Concomitant]
     Indication: FIBROMYALGIA
     Dosage: 60 MG, 1X/DAY
     Route: 048
  5. ELAVIL [Concomitant]
     Indication: SLEEP DISORDER
     Dosage: 100 MG, 1X/DAY
     Route: 048
  6. TIZANIDINE [Concomitant]
     Indication: FIBROMYALGIA
     Dosage: 4 MG, 1X/DAY
     Route: 048
  7. TIZANIDINE [Concomitant]
     Indication: SLEEP DISORDER

REACTIONS (4)
  - ANAEMIA [None]
  - DRUG INEFFECTIVE [None]
  - GASTRITIS [None]
  - OESOPHAGITIS [None]
